FAERS Safety Report 7488485-8 (Version None)
Quarter: 2011Q2

REPORT INFORMATION
  Report Type: 
  Country: None (occurrence: None)
  Receive Date: 20110518
  Receipt Date: 20110411
  Transmission Date: 20111010
  Serious: Yes (Other)
  Sender: FDA-Public Use
  Company Number: US-BAXTER-2011BH008839

PATIENT
  Age: 11 Year
  Sex: Male

DRUGS (2)
  1. IMMUNE GLOBULIN INTRAVENOUS (HUMAN) [Suspect]
     Indication: THROMBOCYTOPENIC PURPURA
     Route: 065
     Dates: start: 20081028
  2. IMMUNE GLOBULIN INTRAVENOUS (HUMAN) [Suspect]
     Route: 065
     Dates: start: 20081109

REACTIONS (5)
  - HEADACHE [None]
  - NAUSEA [None]
  - CONVULSION [None]
  - TRANSVERSE SINUS THROMBOSIS [None]
  - PHOTOPHOBIA [None]
